FAERS Safety Report 14476152 (Version 1)
Quarter: 2018Q1

REPORT INFORMATION
  Report Type: Spontaneous
  Country: US (occurrence: US)
  Receive Date: 20180201
  Receipt Date: 20180201
  Transmission Date: 20180509
  Serious: Yes (Other)
  Sender: FDA-Public Use
  Company Number: None

PATIENT
  Sex: Female
  Weight: 105.75 kg

DRUGS (14)
  1. PANTOPRAZOL [Concomitant]
     Active Substance: PANTOPRAZOLE SODIUM
  2. TIZANADINE [Concomitant]
     Active Substance: TIZANIDINE
  3. NUCYNTA [Concomitant]
     Active Substance: TAPENTADOL HYDROCHLORIDE
  4. VITAMIN B12 [Concomitant]
     Active Substance: CYANOCOBALAMIN
  5. ENBREL [Suspect]
     Active Substance: ETANERCEPT
     Indication: RHEUMATOID ARTHRITIS
     Dosage: ?          QUANTITY:1 INJECTION(S);OTHER FREQUENCY:WEEKLY;?
     Route: 030
     Dates: start: 20120115, end: 20120515
  6. SIMPONI [Concomitant]
     Active Substance: GOLIMUMAB
  7. LISINOPRIL. [Concomitant]
     Active Substance: LISINOPRIL
  8. SULFASALIZINE [Concomitant]
  9. GABAPENTIN. [Concomitant]
     Active Substance: GABAPENTIN
  10. ZOCOR [Concomitant]
     Active Substance: SIMVASTATIN
  11. METOPROLOL. [Concomitant]
     Active Substance: METOPROLOL
  12. HYDROCODONE [Concomitant]
     Active Substance: HYDROCODONE
  13. VITAMIN D3 [Concomitant]
     Active Substance: CHOLECALCIFEROL
  14. PROBIOTIC [Concomitant]
     Active Substance: PROBIOTICS NOS

REACTIONS (2)
  - Therapy cessation [None]
  - Injection site pain [None]
